FAERS Safety Report 4751355-X (Version None)
Quarter: 2005Q3

REPORT INFORMATION
  Report Type: 
  Country: None (occurrence: None)
  Receive Date: 20050824
  Receipt Date: 20050621
  Transmission Date: 20060218
  Serious: Yes (Other)
  Sender: FDA-Public Use
  Company Number: FR-GILEAD-2005-0008434

PATIENT
  Sex: Female
  Weight: 50 kg

DRUGS (8)
  1. VIREAD [Suspect]
     Indication: HIV INFECTION
     Route: 048
     Dates: start: 20020723, end: 20050310
  2. KALETRA [Concomitant]
     Indication: HIV INFECTION
     Route: 048
     Dates: start: 20010430
  3. FUZEON [Concomitant]
     Indication: HIV INFECTION
     Route: 058
     Dates: start: 20041009
  4. ZOVIRAX [Concomitant]
     Indication: HERPES ZOSTER
     Route: 048
     Dates: start: 19980619
  5. LEVOCARNIL [Concomitant]
     Indication: DYSLIPIDAEMIA
     Route: 048
     Dates: start: 20011102
  6. TOCO [Concomitant]
     Indication: HIV INFECTION
     Route: 048
     Dates: start: 19990520
  7. SELENIUM SULFIDE [Concomitant]
     Indication: IMMUNE ENHANCEMENT THERAPY
     Route: 048
     Dates: start: 19990520
  8. LIPANTHYL [Concomitant]
     Indication: DYSLIPIDAEMIA
     Route: 048
     Dates: start: 20000420

REACTIONS (10)
  - ASEPTIC NECROSIS BONE [None]
  - BONE FISSURE [None]
  - BURSITIS [None]
  - ENTHESOPATHY [None]
  - HYPOCALCAEMIA [None]
  - HYPOPHOSPHATAEMIA [None]
  - INTERVERTEBRAL DISC DISORDER [None]
  - OSTEOPENIA [None]
  - PERINEURIAL CYST [None]
  - POLYARTHRITIS [None]
